FAERS Safety Report 7293553-X (Version None)
Quarter: 2011Q1

REPORT INFORMATION
  Report Type: 
  Country: None (occurrence: None)
  Receive Date: 20110203
  Receipt Date: 20110118
  Transmission Date: 20110831
  Serious: Yes (Death)
  Sender: FDA-Public Use
  Company Number: B0694689A

PATIENT
  Age: 33 Year
  Sex: Female

DRUGS (9)
  1. HYDROCODONE BITARTRATE + ACETAMINOPHEN [Suspect]
     Dosage: ORAL
     Route: 048
  2. TRAZODONE HCL [Suspect]
     Dosage: ORAL
     Route: 048
  3. DICLOFENAC SODIUM [Suspect]
     Dosage: ORAL
     Route: 048
  4. ROSUVASTATIN CALCIUM (FORMULATION UNKNOWN) (ROSUVASTATIN CALCIUM) [Suspect]
  5. ROSIGLITAZONE MALEATE [Suspect]
     Dosage: ORAL
  6. LISINOPRIL [Suspect]
     Dosage: ORAL
     Route: 048
  7. NORTRIPTYLINE HCL [Suspect]
     Dosage: ORAL
     Route: 048
  8. ARIPIPRAZOLE [Suspect]
     Dosage: ORAL
     Route: 048
  9. OXYCODONE HCL [Suspect]

REACTIONS (2)
  - INTENTIONAL DRUG MISUSE [None]
  - CARDIO-RESPIRATORY ARREST [None]
